FAERS Safety Report 26066039 (Version 1)
Quarter: 2025Q4

REPORT INFORMATION
  Report Type: Spontaneous
  Country: GB (occurrence: GB)
  Receive Date: 20251119
  Receipt Date: 20251119
  Transmission Date: 20260117
  Serious: Yes (Other)
  Sender: MILLICENT HOLDINGS
  Company Number: GB-Millicent Holdings Ltd.-MILL20250320

PATIENT
  Age: 71 Year
  Sex: Female

DRUGS (3)
  1. INTRAROSA [Suspect]
     Active Substance: PRASTERONE
     Indication: Atrophic vulvovaginitis
     Dosage: 6.5 MILLIGRAM ONCE DAILY AT NIGHT
     Route: 065
     Dates: start: 20251028, end: 20251029
  2. FLUCONAZOLE [Concomitant]
     Active Substance: FLUCONAZOLE
     Indication: Vulvovaginal candidiasis
     Dates: start: 20251028
  3. AUGMENTIN [Concomitant]
     Active Substance: AMOXICILLIN\CLAVULANATE POTASSIUM
     Indication: Vaginal cellulitis
     Dates: start: 20251028

REACTIONS (2)
  - Aphonia [Recovered/Resolved]
  - Off label use [Recovered/Resolved]

NARRATIVE: CASE EVENT DATE: 20251028
